FAERS Safety Report 24887258 (Version 4)
Quarter: 2025Q2

REPORT INFORMATION
  Report Type: Report from Study
  Country: US (occurrence: US)
  Receive Date: 20250127
  Receipt Date: 20250625
  Transmission Date: 20250716
  Serious: Yes (Hospitalization, Other)
  Sender: ABBVIE
  Company Number: US-ABBVIE-6097862

PATIENT
  Age: 88 Year
  Sex: Female
  Weight: 64 kg

DRUGS (1)
  1. LUMIGAN [Suspect]
     Active Substance: BIMATOPROST
     Indication: Product used for unknown indication
     Dosage: FORM STRENGTH:0.3MG/ML, 1 DROP EACH EYE DAILY?OPHTHALMIC 0.01 ML DROP EVERY NIGHT AT BEDTIME
     Route: 047
     Dates: start: 2018

REACTIONS (10)
  - Head injury [Unknown]
  - Head discomfort [Unknown]
  - Gait disturbance [Not Recovered/Not Resolved]
  - Surgical failure [Not Recovered/Not Resolved]
  - Amnesia [Unknown]
  - Eye disorder [Not Recovered/Not Resolved]
  - Dehydration [Unknown]
  - Loss of consciousness [Recovered/Resolved]
  - Headache [Unknown]
  - Neck pain [Unknown]
